FAERS Safety Report 8156493-X (Version None)
Quarter: 2012Q1

REPORT INFORMATION
  Report Type: 
  Country: None (occurrence: None)
  Receive Date: 20120222
  Receipt Date: 20120214
  Transmission Date: 20120608
  Serious: Yes (Other)
  Sender: FDA-Public Use
  Company Number: US-BAYER-2011-055311

PATIENT
  Age: 45 Year
  Sex: Female
  Weight: 54.422 kg

DRUGS (8)
  1. DIETARY SUPPLEMENT [Concomitant]
     Dosage: UNK UNK, PRN
     Dates: start: 20051229
  2. TOPAMAX [Concomitant]
     Indication: MIGRAINE PROPHYLAXIS
     Dosage: 100 MG, QD
  3. YAZ [Suspect]
     Indication: ACNE
     Dosage: UNK
     Route: 048
     Dates: start: 20010101, end: 20090101
  4. YASMIN [Suspect]
     Indication: HEADACHE
  5. YASMIN [Suspect]
     Indication: ACNE
     Dosage: UNK
     Route: 048
     Dates: start: 20010101, end: 20090101
  6. NEURONTIN [Concomitant]
     Dosage: 300 MG, QD
     Dates: start: 20051230
  7. YAZ [Suspect]
     Indication: HEADACHE
  8. AMBIEN [Concomitant]
     Indication: SLEEP DISORDER THERAPY
     Dosage: UNK

REACTIONS (4)
  - PAIN [None]
  - CHOLECYSTITIS CHRONIC [None]
  - GALLBLADDER DISORDER [None]
  - INJURY [None]
